FAERS Safety Report 9989509 (Version 1)
Quarter: 2014Q1

REPORT INFORMATION
  Report Type: Report from Study
  Country: US (occurrence: US)
  Receive Date: 20140310
  Receipt Date: 20140310
  Transmission Date: 20141002
  Serious: No
  Sender: FDA-Public Use
  Company Number: US-ABBVIE-13P-163-1135873-00

PATIENT
  Age: 54 Year
  Sex: Male

DRUGS (11)
  1. HUMIRA [Suspect]
     Indication: RHEUMATOID ARTHRITIS
     Dosage: INITIAL DOSE
     Dates: start: 20130813
  2. HUMIRA [Suspect]
  3. PREDNISONE [Concomitant]
     Indication: PRODUCT USED FOR UNKNOWN INDICATION
     Dosage: 5 MG DAILY
  4. XANAX [Concomitant]
     Indication: MOOD ALTERED
     Dosage: 0.5 MG DAILY
  5. XANAX [Concomitant]
     Indication: ANXIETY
  6. ASA [Concomitant]
     Indication: PRODUCT USED FOR UNKNOWN INDICATION
  7. AMITRIPTYLINE [Concomitant]
     Indication: INSOMNIA
     Dosage: HALF A PILL EVERY NIGHT AT BEDTIME
  8. METHOTREXATE [Concomitant]
     Indication: PRODUCT USED FOR UNKNOWN INDICATION
     Dosage: 6 PILLS EVERY MONDAY
  9. FOLIC ACID [Concomitant]
     Indication: PRODUCT USED FOR UNKNOWN INDICATION
     Dosage: TUESDAYS
  10. OXYCODONE [Concomitant]
     Indication: PAIN
  11. TRAMADOL [Concomitant]
     Indication: PAIN

REACTIONS (1)
  - Arthralgia [Not Recovered/Not Resolved]
